FAERS Safety Report 6671506-X (Version None)
Quarter: 2010Q2

REPORT INFORMATION
  Report Type: 
  Country: None (occurrence: None)
  Receive Date: 20100407
  Receipt Date: 20100331
  Transmission Date: 20101027
  Serious: Yes (Death, Hospitalization)
  Sender: FDA-Public Use
  Company Number: US-BAXTER-2010BH007902

PATIENT
  Age: 70 Year
  Sex: Male

DRUGS (4)
  1. DIANEAL [Suspect]
     Indication: PERITONEAL DIALYSIS
     Route: 033
     Dates: end: 20090928
  2. DIANEAL [Suspect]
     Route: 033
     Dates: end: 20090928
  3. DIANEAL [Suspect]
     Indication: PERITONEAL DIALYSIS
     Route: 033
     Dates: start: 20090928, end: 20091014
  4. DIANEAL [Suspect]
     Route: 033
     Dates: start: 20090928, end: 20091014

REACTIONS (2)
  - CARDIAC DISORDER [None]
  - INFECTION [None]
